FAERS Safety Report 7953735-8 (Version None)
Quarter: 2011Q4

REPORT INFORMATION
  Report Type: 
  Country: None (occurrence: None)
  Receive Date: 20111202
  Receipt Date: 20111128
  Transmission Date: 20120403
  Serious: Yes (Other)
  Sender: FDA-Public Use
  Company Number: US-JNJFOC-20111009278

PATIENT
  Age: 67 Year
  Sex: Female
  Weight: 86.18 kg

DRUGS (2)
  1. MOTRIN IB [Suspect]
     Indication: KNEE ARTHROPLASTY
     Route: 048
     Dates: start: 19900101
  2. MOTRIN IB [Suspect]
     Indication: CARDIAC OPERATION
     Route: 048
     Dates: start: 19900101

REACTIONS (5)
  - LARGE INTESTINAL ULCER [None]
  - INCORRECT DOSE ADMINISTERED [None]
  - OVERDOSE [None]
  - COLONIC POLYP [None]
  - INTENTIONAL DRUG MISUSE [None]
